FAERS Safety Report 21774687 (Version 1)
Quarter: 2022Q4

REPORT INFORMATION
  Report Type: Spontaneous
  Country: GB (occurrence: GB)
  Receive Date: 20221224
  Receipt Date: 20221224
  Transmission Date: 20230113
  Serious: Yes (Hospitalization)
  Sender: FDA-Public Use
  Company Number: GB-RP-024332

PATIENT
  Age: 51 Year
  Sex: Male

DRUGS (9)
  1. CODEINE [Suspect]
     Active Substance: CODEINE
     Indication: Product used for unknown indication
     Route: 065
  2. MORPHINE [Suspect]
     Active Substance: MORPHINE
     Indication: Product used for unknown indication
     Route: 065
  3. DIAZEPAM [Suspect]
     Active Substance: DIAZEPAM
     Indication: Product used for unknown indication
     Route: 065
  4. 4F-MDMB-BINACA [Suspect]
     Active Substance: 4F-MDMB-BINACA
     Indication: Product used for unknown indication
     Route: 065
  5. ADB-HEXINACA [Suspect]
     Active Substance: ADB-HEXINACA
     Indication: Product used for unknown indication
     Route: 065
  6. MDMB-4EN-PINACA [Suspect]
     Active Substance: MDMB-4EN-PINACA
     Indication: Product used for unknown indication
     Route: 065
  7. METHADONE [Suspect]
     Active Substance: METHADONE HYDROCHLORIDE
     Indication: Product used for unknown indication
     Route: 065
  8. CANNABIS SATIVA SUBSP. INDICA TOP [Suspect]
     Active Substance: CANNABIS SATIVA SUBSP. INDICA TOP
     Indication: Product used for unknown indication
     Route: 065
  9. HEROIN [Suspect]
     Active Substance: DIAMORPHINE
     Indication: Product used for unknown indication
     Route: 065

REACTIONS (9)
  - Intentional product misuse [Unknown]
  - Toxicity to various agents [Unknown]
  - Agitation [Unknown]
  - Pyrexia [Unknown]
  - Hypotension [Unknown]
  - Coma scale abnormal [Unknown]
  - Depressed level of consciousness [Unknown]
  - Hallucination [Unknown]
  - Vomiting [Unknown]
